FAERS Safety Report 6816697-2 (Version None)
Quarter: 2010Q3

REPORT INFORMATION
  Report Type: 
  Country: None (occurrence: None)
  Receive Date: 20100706
  Receipt Date: 20100628
  Transmission Date: 20110219
  Serious: Yes (Hospitalization)
  Sender: FDA-Public Use
  Company Number: US-JNJFOC-20100700114

PATIENT
  Sex: Female
  Weight: 74.84 kg

DRUGS (4)
  1. DURAGESIC-100 [Suspect]
     Indication: PAIN
     Route: 062
  2. DURAGESIC-100 [Suspect]
     Route: 062
  3. OXYCONTIN [Concomitant]
     Indication: BREAKTHROUGH PAIN
     Route: 065
  4. OXYCODONE HCL [Concomitant]
     Indication: BREAKTHROUGH PAIN
     Route: 065

REACTIONS (8)
  - APPLICATION SITE ERYTHEMA [None]
  - APPLICATION SITE PRURITUS [None]
  - APPLICATION SITE RASH [None]
  - APPLICATION SITE REACTION [None]
  - CYSTITIS [None]
  - THERAPEUTIC RESPONSE DECREASED [None]
  - THYROID CANCER [None]
  - WRONG TECHNIQUE IN DRUG USAGE PROCESS [None]
